FAERS Safety Report 21670486 (Version 2)
Quarter: 2022Q4

REPORT INFORMATION
  Report Type: Spontaneous
  Country: JP (occurrence: JP)
  Receive Date: 20221201
  Receipt Date: 20221221
  Transmission Date: 20230112
  Serious: Yes (Hospitalization, Other)
  Sender: FDA-Public Use
  Company Number: JP-SA-2022SA487480

PATIENT
  Age: 92 Year
  Sex: Female

DRUGS (1)
  1. AMARYL [Suspect]
     Active Substance: GLIMEPIRIDE
     Indication: Product used for unknown indication
     Dosage: DAILY DOSE: 1 MG (STARTED DATE, UNKNOWN)
     Route: 048

REACTIONS (4)
  - Hypoglycaemic encephalopathy [Not Recovered/Not Resolved]
  - Altered state of consciousness [Recovering/Resolving]
  - Wrong product administered [Not Recovered/Not Resolved]
  - Fall [Unknown]
